FAERS Safety Report 13081887 (Version 1)
Quarter: 2017Q1

REPORT INFORMATION
  Report Type: Spontaneous
  Country: CN (occurrence: CN)
  Receive Date: 20170103
  Receipt Date: 20170103
  Transmission Date: 20170428
  Serious: Yes (Other)
  Sender: FDA-Public Use
  Company Number: CN-BAYER-2016-245645

PATIENT
  Age: 47 Year
  Sex: Male

DRUGS (1)
  1. GLUCOBAY [Suspect]
     Active Substance: ACARBOSE
     Dosage: UNK
     Route: 048

REACTIONS (3)
  - Suspected counterfeit product [None]
  - Hyperglycaemia [None]
  - Feeling abnormal [None]
